FAERS Safety Report 8122276-X (Version None)
Quarter: 2012Q1

REPORT INFORMATION
  Report Type: 
  Country: None (occurrence: None)
  Receive Date: 20120208
  Receipt Date: 20120131
  Transmission Date: 20120608
  Serious: No
  Sender: FDA-Public Use
  Company Number: SV-ELI_LILLY_AND_COMPANY-SV201112000247

PATIENT
  Age: 48 Year
  Sex: Male

DRUGS (2)
  1. TADALAFIL [Suspect]
     Indication: OFF LABEL USE
     Dosage: 20 MG, UNK
     Dates: start: 20111030
  2. METOPROLOL [Concomitant]

REACTIONS (3)
  - OPTIC NEURITIS [None]
  - INAPPROPRIATE SCHEDULE OF DRUG ADMINISTRATION [None]
  - OFF LABEL USE [None]
